FAERS Safety Report 19455054 (Version 1)
Quarter: 2021Q2

REPORT INFORMATION
  Report Type: Spontaneous
  Country: US (occurrence: ES)
  Receive Date: 20210623
  Receipt Date: 20210623
  Transmission Date: 20210717
  Serious: Yes (Hospitalization)
  Sender: FDA-Public Use
  Company Number: ES-ALLERGAN-2123587US

PATIENT
  Sex: Female

DRUGS (5)
  1. OMEPRAZOLE ALMUS [Concomitant]
     Active Substance: OMEPRAZOLE
     Dosage: 1 DF, QD
  2. AREMIS [AMLODIPINE BESILATE;VALSARTAN] [Concomitant]
     Dosage: UNK
     Dates: start: 20200212
  3. MONUROL [Suspect]
     Active Substance: FOSFOMYCIN TROMETHAMINE
     Indication: PRODUCT USED FOR UNKNOWN INDICATION
     Dosage: 2 DF ON CONSECUTIVE DAYS
  4. PREDNISONA ALONGA [Concomitant]
     Active Substance: PREDNISONE
     Dosage: 2.5 MG, QOD
     Dates: start: 20200212
  5. VALSARTAN. [Concomitant]
     Active Substance: VALSARTAN
     Route: 048

REACTIONS (3)
  - Diarrhoea [Recovered/Resolved]
  - Overdose [Unknown]
  - Vomiting [Recovered/Resolved]
